FAERS Safety Report 7166605-2 (Version None)
Quarter: 2010Q4

REPORT INFORMATION
  Report Type: 
  Country: None (occurrence: None)
  Receive Date: 20101216
  Receipt Date: 20101210
  Transmission Date: 20110411
  Serious: Yes (Other)
  Sender: FDA-Public Use
  Company Number: FR-CELGENEUS-056-21880-10121280

PATIENT
  Age: 78 Year
  Sex: Female
  Weight: 60 kg

DRUGS (5)
  1. REVLIMID [Suspect]
     Indication: MULTIPLE MYELOMA
     Route: 048
     Dates: start: 20100217, end: 20101109
  2. DEXAMETHASONE [Suspect]
     Indication: MULTIPLE MYELOMA
     Route: 048
     Dates: start: 20100217, end: 20100408
  3. DEXAMETHASONE [Suspect]
     Dosage: 80MG A MONTH
     Route: 048
     Dates: start: 20100422, end: 20101109
  4. PREDNISONE [Suspect]
     Indication: MULTIPLE MYELOMA
     Dosage: 840MG A MONTH
     Route: 048
     Dates: start: 20100408, end: 20100421
  5. ASPIRIN [Concomitant]
     Indication: THROMBOSIS PROPHYLAXIS
     Route: 065

REACTIONS (3)
  - HYPERCALCAEMIA [None]
  - PULMONARY OEDEMA [None]
  - RENAL FAILURE [None]
